FAERS Safety Report 6541976-6 (Version None)
Quarter: 2010Q1

REPORT INFORMATION
  Report Type: 
  Country: None (occurrence: None)
  Receive Date: 20100119
  Receipt Date: 20100111
  Transmission Date: 20100710
  Serious: Yes (Hospitalization)
  Sender: FDA-Public Use
  Company Number: US-BIOGENIDEC-2009BI041592

PATIENT
  Age: 64 Year
  Sex: Male

DRUGS (12)
  1. AVONEX [Suspect]
     Indication: MULTIPLE SCLEROSIS
     Route: 030
     Dates: start: 20060301, end: 20091101
  2. ATIVAN [Concomitant]
  3. AMBIEN CR [Concomitant]
  4. LISINOPRIL [Concomitant]
  5. ELIDEL [Concomitant]
  6. FOREDIL [Concomitant]
  7. BACLOFEN [Concomitant]
  8. SPIRIVA [Concomitant]
  9. MUCINEX [Concomitant]
  10. LASIX [Concomitant]
  11. FOLIC ACID [Concomitant]
  12. ASMANEX TWISTHALER [Concomitant]

REACTIONS (2)
  - CHRONIC OBSTRUCTIVE PULMONARY DISEASE [None]
  - HYPOTENSION [None]
